FAERS Safety Report 15133751 (Version 1)
Quarter: 2018Q3

REPORT INFORMATION
  Report Type: Spontaneous
  Country: US (occurrence: US)
  Receive Date: 20180712
  Receipt Date: 20180712
  Transmission Date: 20181010
  Serious: No
  Sender: FDA-Public Use
  Company Number: US-B.I. PHARMACEUTICALS,INC./RIDGEFIELD-2018-BI-035836

PATIENT
  Age: 59 Year
  Sex: Male

DRUGS (2)
  1. SEREVENT DISKUS [Concomitant]
     Active Substance: SALMETEROL XINAFOATE
     Indication: RESPIRATORY DISORDER
     Route: 065
  2. SPIRIVA [Suspect]
     Active Substance: TIOTROPIUM BROMIDE MONOHYDRATE
     Indication: RESPIRATORY DISORDER
     Dosage: ACTION(S) TAKEN : DOSE NOT CHANGED
     Route: 055
     Dates: start: 201802

REACTIONS (4)
  - Haemoptysis [Not Recovered/Not Resolved]
  - Dyspnoea [Recovered/Resolved]
  - Productive cough [Not Recovered/Not Resolved]
  - Pleural effusion [Recovered/Resolved]

NARRATIVE: CASE EVENT DATE: 2018
